FAERS Safety Report 15037180 (Version 1)
Quarter: 2018Q2

REPORT INFORMATION
  Report Type: Spontaneous
  Country: CH (occurrence: CH)
  Receive Date: 20180620
  Receipt Date: 20180620
  Transmission Date: 20180711
  Serious: Yes (Other)
  Sender: FDA-Public Use
  Company Number: CH-ASTRAZENECA-2017SF06360

PATIENT
  Age: 320 Month
  Sex: Female

DRUGS (8)
  1. PASPERTIN (METOCLOPRAMIDE\POLIDOCANOL) [Suspect]
     Active Substance: METOCLOPRAMIDE\POLIDOCANOL
     Route: 040
     Dates: start: 20170731
  2. BENERVA [Suspect]
     Active Substance: THIAMINE
     Dosage: 150 MG, EVERY 48 HRS
     Route: 041
     Dates: start: 20170731
  3. ZYPREXA [Concomitant]
     Active Substance: OLANZAPINE
     Dosage: 5 MG/DAY
     Dates: start: 20170221, end: 201704
  4. DEROXAT [Concomitant]
     Active Substance: PAROXETINE HYDROCHLORIDE
     Dosage: 30 MG/DAY
     Dates: start: 20170221, end: 201704
  5. REMERON [Suspect]
     Active Substance: MIRTAZAPINE
     Route: 048
     Dates: start: 201708
  6. ATROPINE SULFATE. [Suspect]
     Active Substance: ATROPINE SULFATE
     Route: 048
     Dates: start: 20170731
  7. SEROQUEL [Suspect]
     Active Substance: QUETIAPINE FUMARATE
     Route: 048
     Dates: start: 201708
  8. ITINEROL B6 [Suspect]
     Active Substance: CAFFEINE\MECLIZINE MONOHYDROCHLORIDE\PYRIDOXINE HYDROCHLORIDE
     Route: 054
     Dates: start: 20170731

REACTIONS (2)
  - Atrioventricular septal defect [Recovered/Resolved]
  - Exposure during pregnancy [Unknown]

NARRATIVE: CASE EVENT DATE: 201707
